FAERS Safety Report 9983213 (Version 4)
Quarter: 2014Q3

REPORT INFORMATION
  Report Type: Spontaneous
  Country: CN (occurrence: CN)
  Receive Date: 20140307
  Receipt Date: 20140820
  Transmission Date: 20150326
  Serious: Yes (Other)
  Sender: FDA-Public Use
  Company Number: CN-PFIZER INC-2014064779

PATIENT
  Age: 79 Year
  Sex: Female

DRUGS (2)
  1. MS CONTIN [Suspect]
     Active Substance: MORPHINE SULFATE
     Dosage: 40 MG, Q12H
     Route: 048
  2. MS CONTIN [Suspect]
     Active Substance: MORPHINE SULFATE
     Indication: CANCER PAIN
     Dosage: 30 MG, Q12H
     Route: 048

REACTIONS (10)
  - Wrong technique in drug usage process [Recovered/Resolved]
  - Respiratory depression [Recovered/Resolved]
  - Hypotension [Recovered/Resolved]
  - Gaze palsy [Recovered/Resolved]
  - Miosis [Recovered/Resolved]
  - Tachycardia [Recovered/Resolved]
  - Nystagmus [Recovered/Resolved]
  - Asthenia [Recovered/Resolved]
  - Toxicity to various agents [Recovered/Resolved]
  - Somnolence [Not Recovered/Not Resolved]
